FAERS Safety Report 6086384-X (Version None)
Quarter: 2009Q1

REPORT INFORMATION
  Report Type: 
  Country: None (occurrence: None)
  Receive Date: 20090220
  Receipt Date: 20090205
  Transmission Date: 20090719
  Serious: Yes (Hospitalization)
  Sender: FDA-Public Use
  Company Number: FR-GENENTECH-277316

PATIENT
  Sex: Male

DRUGS (10)
  1. MABTHERA [Suspect]
     Indication: LYMPHOMA
     Dosage: 750 MG, UNK
     Route: 042
     Dates: start: 20081016
  2. CARDIOXANE [Suspect]
     Indication: CHEMOTHERAPY
     Dosage: 2000 MG, UNK
     Route: 042
     Dates: start: 20081016, end: 20081016
  3. ENDOXAN [Suspect]
     Indication: LYMPHOMA
     Dosage: 1000 MG, UNK
     Route: 042
     Dates: start: 20081016
  4. ONCOVIN [Suspect]
     Indication: LYMPHOMA
     Dosage: 1.8 MG, UNK
     Route: 042
     Dates: start: 20081016
  5. DOXORUBICIN HCL [Suspect]
     Indication: LYMPHOMA
     Dosage: 45 MG, UNK
     Route: 042
     Dates: start: 20081016
  6. ZOPHREN [Concomitant]
     Indication: DRUG USE FOR UNKNOWN INDICATION
     Dosage: UNK
     Dates: start: 20081016
  7. SOLUDECADRON [Concomitant]
     Indication: DRUG USE FOR UNKNOWN INDICATION
     Dosage: UNK
     Dates: start: 20081016
  8. POLARAMINE [Concomitant]
     Indication: DRUG USE FOR UNKNOWN INDICATION
     Dosage: UNK
     Dates: start: 20081016
  9. AZANTAC [Concomitant]
     Indication: DRUG USE FOR UNKNOWN INDICATION
     Dosage: UNK
     Dates: start: 20081016
  10. NEUPOGEN [Concomitant]
     Indication: DRUG USE FOR UNKNOWN INDICATION
     Dosage: UNK
     Dates: start: 20081016, end: 20081018

REACTIONS (1)
  - FEBRILE NEUTROPENIA [None]
